FAERS Safety Report 21349743 (Version 1)
Quarter: 2022Q3

REPORT INFORMATION
  Report Type: Spontaneous
  Country: US (occurrence: None)
  Receive Date: 20220916
  Receipt Date: 20220916
  Transmission Date: 20221027
  Serious: No
  Sender: FDA-Public Use
  Company Number: None

PATIENT
  Age: 83 Year
  Sex: Female

DRUGS (28)
  1. MEKINIST [Suspect]
     Active Substance: TRAMETINIB DIMETHYL SULFOXIDE
     Indication: Malignant melanoma
     Dosage: FREQUENCY : DAILY;?
     Route: 048
  2. TAFINLAR [Suspect]
     Active Substance: DABRAFENIB MESYLATE
     Indication: Malignant melanoma
     Dosage: OTHER FREQUENCY : Q12HOURS;?
  3. CALCITONIN [Concomitant]
     Active Substance: CALCITONIN
  4. CALTRATE 600+D [Concomitant]
  5. CARVEDILOL [Concomitant]
     Active Substance: CARVEDILOL
  6. CEFUROXIME [Concomitant]
  7. COLACE [Concomitant]
  8. DEMECLOCYCLINE [Concomitant]
  9. DIPHENHYDRAMINE [Concomitant]
  10. DOCUSATE SODIUM [Concomitant]
  11. DULCOLAX [Concomitant]
  12. GLUCOSAMINE [Concomitant]
  13. CHONDROLITIN [Concomitant]
  14. HEPARIN [Concomitant]
  15. INTRAVENOUS [Concomitant]
  16. LATANOPROST [Concomitant]
  17. LOSARTANMILKOF MAGNESIA [Concomitant]
  18. MIRALAX [Concomitant]
  19. MULTIVITAMIN [Concomitant]
  20. MYLANTA [Concomitant]
  21. NORCO [Concomitant]
     Active Substance: ACETAMINOPHEN\HYDROCODONE BITARTRATE
  22. NYSTATIN [Concomitant]
  23. OMEPRAZOLE PROTONIX [Concomitant]
  24. SAMSCA [Concomitant]
  25. SOLU-CORTEF [Concomitant]
  26. TAMSULOSIN [Concomitant]
     Active Substance: TAMSULOSIN
  27. TYLENOL [Concomitant]
     Active Substance: ACETAMINOPHEN
  28. ZOFRAN [Concomitant]

REACTIONS (1)
  - Hospice care [None]
